FAERS Safety Report 4284375-2 (Version None)
Quarter: 2004Q1

REPORT INFORMATION
  Report Type: 
  Country: None (occurrence: None)
  Receive Date: 20040130
  Receipt Date: 20040113
  Transmission Date: 20041129
  Serious: Yes (Death, Other)
  Sender: FDA-Public Use
  Company Number: USA040156454

PATIENT
  Age: 68 Year
  Sex: Female
  Weight: 82 kg

DRUGS (2)
  1. ZYPREXA [Suspect]
     Indication: AGITATION
  2. ZYPREXA [Suspect]
     Indication: DEMENTIA

REACTIONS (2)
  - DIABETIC COMA [None]
  - SEPSIS [None]
